FAERS Safety Report 23977656 (Version 1)
Quarter: 2024Q2

REPORT INFORMATION
  Report Type: Spontaneous
  Country: DE (occurrence: DE)
  Receive Date: 20240614
  Receipt Date: 20240614
  Transmission Date: 20240716
  Serious: Yes (Hospitalization)
  Sender: FDA-Public Use
  Company Number: DE-ROCHE-2897341

PATIENT
  Age: 60 Year
  Sex: Female
  Weight: 80.7 kg

DRUGS (33)
  1. CARBOPLATIN [Suspect]
     Active Substance: CARBOPLATIN
     Indication: Non-small cell lung cancer metastatic
     Dosage: DATE OF MOST RECENT DOSE (390 MG) OF CARBOPLATIN PRIOR TO AE/SAE ONSET: 02/AUG/2021.AREA UNDER THE C
     Route: 042
     Dates: start: 20210802
  2. PEMETREXED [Suspect]
     Active Substance: PEMETREXED
     Indication: Non-small cell lung cancer metastatic
     Dosage: DATE OF MOST RECENT DOSE (887.5 MG) OF PEMETREXED PRIOR TO AE/SAE ONSET: 02/AUG/2021.
     Route: 042
     Dates: start: 20210802
  3. AKYNZEO [Concomitant]
     Indication: Product used for unknown indication
     Dosage: 300.000MG
     Route: 065
     Dates: start: 20210802, end: 20210802
  4. ALBUMIN HUMAN [Concomitant]
     Active Substance: ALBUMIN HUMAN
     Indication: Anaemia
     Dosage: 100.000ML
     Route: 065
     Dates: start: 20210829, end: 20210829
  5. ATEZOLIZUMAB [Concomitant]
     Active Substance: ATEZOLIZUMAB
     Indication: Non-small cell lung cancer metastatic
     Dosage: DATE OF MOST RECENT DOSE OF BLINDED ATEZOLIZUMAB PRIOR TO AE/SAE ONSET: 02/AUG/2021.
     Route: 065
     Dates: start: 20210802
  6. ENOXAPARIN SODIUM [Concomitant]
     Active Substance: ENOXAPARIN SODIUM
     Indication: Thrombosis
     Dosage: 0.200MG QD
     Route: 065
     Dates: end: 20210906
  7. ENOXAPARIN SODIUM [Concomitant]
     Active Substance: ENOXAPARIN SODIUM
     Indication: Embolism
     Dosage: 0.400MG
     Route: 065
     Dates: end: 20210905
  8. DEXAMETHASONE [Concomitant]
     Active Substance: DEXAMETHASONE
     Indication: Product used for unknown indication
     Dosage: 8.000MG
     Route: 065
     Dates: start: 20210802, end: 20210802
  9. DULOXETINE [Concomitant]
     Active Substance: DULOXETINE
     Indication: Depression
     Dosage: 30.000MG QD
     Route: 065
     Dates: start: 20210826, end: 20210831
  10. DULOXETINE [Concomitant]
     Active Substance: DULOXETINE
     Dosage: 60.000MG QD
     Route: 065
     Dates: start: 20210922
  11. FOLIC ACID [Concomitant]
     Active Substance: FOLIC ACID
     Indication: Prophylaxis
     Dosage: 0.400MG QD
     Route: 065
     Dates: start: 20210726, end: 20210831
  12. FOLIC ACID [Concomitant]
     Active Substance: FOLIC ACID
     Indication: Anaemia
     Dosage: 5.000MG QD
     Route: 065
     Dates: start: 20210827, end: 20210921
  13. FOLIC ACID [Concomitant]
     Active Substance: FOLIC ACID
     Dosage: UNK, QD
     Route: 065
     Dates: start: 20210827, end: 20210827
  14. FOLIC ACID [Concomitant]
     Active Substance: FOLIC ACID
     Indication: Product used for unknown indication
     Route: 065
  15. IODINE [Concomitant]
     Active Substance: IODINE
     Indication: Iodine deficiency
     Dosage: 100UG
     Route: 065
     Dates: start: 20210921
  16. POTASSIUM CARBONATE\POTASSIUM CITRATE [Concomitant]
     Active Substance: POTASSIUM CARBONATE\POTASSIUM CITRATE
     Indication: Hypokalaemia
     Dosage: 200.000MG
     Route: 065
     Dates: start: 20210828, end: 20210828
  17. POTASSIUM CARBONATE\POTASSIUM CITRATE [Concomitant]
     Active Substance: POTASSIUM CARBONATE\POTASSIUM CITRATE
     Dosage: 4000.000MG
     Route: 065
     Dates: start: 20210831, end: 20210831
  18. POTASSIUM CARBONATE\POTASSIUM CITRATE [Concomitant]
     Active Substance: POTASSIUM CARBONATE\POTASSIUM CITRATE
     Dosage: 4000.000MG
     Route: 065
     Dates: start: 20210904, end: 20210904
  19. Kalinor-retard [Concomitant]
     Dosage: 1200.000MG
     Route: 065
     Dates: start: 20210827, end: 20210828
  20. Kalinor-retard [Concomitant]
     Dosage: 1200.000MG
     Route: 065
     Dates: start: 20210901, end: 20210911
  21. Kalinor-retard [Concomitant]
     Indication: Hypokalaemia
     Dosage: 200.000MG
     Route: 065
     Dates: start: 20210828, end: 20210828
  22. MCP [Concomitant]
     Active Substance: METOCLOPRAMIDE HYDROCHLORIDE
     Indication: Restlessness
     Dosage: 10.000MG
     Route: 065
  23. MIRTAZAPINE [Concomitant]
     Active Substance: MIRTAZAPINE
     Indication: Depression
     Dosage: 15.000MG
     Route: 065
  24. PANTOPRAZOLE SODIUM [Concomitant]
     Active Substance: PANTOPRAZOLE SODIUM
     Indication: Product used for unknown indication
     Dosage: 40.000MG QD
     Route: 065
  25. PEMBROLIZUMAB [Concomitant]
     Active Substance: PEMBROLIZUMAB
     Indication: Non-small cell lung cancer metastatic
     Dosage: DATE OF MOST RECENT DOSE OF BLINDED PEMBROLIZUMAB PRIOR TO AE/SAE ONSET: 02/AUG/2021.
     Route: 065
     Dates: start: 20210802
  26. PERENTEROL [Concomitant]
     Active Substance: SACCHAROMYCES CEREVISIAE
     Indication: Product used for unknown indication
     Dosage: 250.000MG
     Route: 065
  27. PIPAMPERONE HYDROCHLORIDE [Concomitant]
     Active Substance: PIPAMPERONE HYDROCHLORIDE
     Indication: Restlessness
     Dosage: 20.000MG QD
     Route: 065
     Dates: start: 20210826, end: 20210921
  28. PIPAMPERONE HYDROCHLORIDE [Concomitant]
     Active Substance: PIPAMPERONE HYDROCHLORIDE
     Dosage: 40.000MG QD
     Route: 065
     Dates: end: 20210827
  29. Tavor [Concomitant]
     Indication: Prophylaxis
     Dosage: 1.000MG
     Route: 065
     Dates: start: 20210915, end: 20210915
  30. Tavor [Concomitant]
     Dosage: 1.000MG
     Route: 065
     Dates: start: 20210824, end: 20210824
  31. TIRAGOLUMAB [Concomitant]
     Active Substance: TIRAGOLUMAB
     Indication: Non-small cell lung cancer metastatic
     Dosage: DATE OF MOST RECENT DOSE OF BLINDED TIRAGOLUMAB PRIOR TO AE/SAE ONSET: 02/AUG/2021.
     Route: 065
     Dates: start: 20210802
  32. TORSEMIDE [Concomitant]
     Active Substance: TORSEMIDE
     Indication: Fluid retention
     Dosage: 10.000MG QD
     Route: 065
     Dates: start: 20210920
  33. ZOPICLONE [Concomitant]
     Active Substance: ZOPICLONE
     Indication: Restlessness
     Dosage: 7.500MG QD
     Route: 065
     Dates: end: 20210826

REACTIONS (1)
  - Peritonitis [Recovered/Resolved]

NARRATIVE: CASE EVENT DATE: 20210821
